APPROVED DRUG PRODUCT: KORLYM
Active Ingredient: MIFEPRISTONE
Strength: 300MG
Dosage Form/Route: TABLET;ORAL
Application: N202107 | Product #001 | TE Code: AB
Applicant: CORCEPT THERAPEUTICS INC
Approved: Feb 17, 2012 | RLD: Yes | RS: Yes | Type: RX

PATENTS:
Patent 10166243 | Expires: Apr 20, 2036
Patent 10151763 | Expires: Jan 18, 2037
Patent 8921348 | Expires: Aug 27, 2028
Patent 9829495 | Expires: Aug 15, 2036
Patent 10500216 | Expires: Mar 5, 2033
Patent 10495650 | Expires: Aug 12, 2036
Patent 9943526 | Expires: Apr 20, 2036
Patent 11969435 | Expires: Jun 19, 2037
Patent 12097210 | Expires: Jun 19, 2037
Patent 10166242 | Expires: Apr 20, 2036
Patent 10231983 | Expires: Aug 22, 2038
Patent 10195214 | Expires: Jun 19, 2037
Patent 10660904 | Expires: Apr 20, 2036
Patent 10314850 | Expires: Aug 22, 2038
Patent 10780097 | Expires: Aug 22, 2038
Patent 10842800 | Expires: Jun 19, 2037
Patent 10842801 | Expires: Nov 15, 2032
Patent 10006924 | Expires: Aug 12, 2036